FAERS Safety Report 14068171 (Version 3)
Quarter: 2019Q1

REPORT INFORMATION
  Report Type: Spontaneous
  Country: JP (occurrence: JP)
  Receive Date: 20171010
  Receipt Date: 20190201
  Transmission Date: 20190417
  Serious: Yes (Death, Other)
  Sender: FDA-Public Use
  Company Number: JP-SHIRE-JP201722322AA

PATIENT
  Age: 46 Year
  Sex: Male

DRUGS (1)
  1. AGRYLIN [Suspect]
     Active Substance: ANAGRELIDE HYDROCHLORIDE
     Indication: ESSENTIAL THROMBOCYTHAEMIA
     Dosage: 2 MG/DAY
     Route: 048
     Dates: start: 20170214, end: 20170817

REACTIONS (3)
  - Sudden death [Fatal]
  - Headache [Unknown]
  - Palpitations [Unknown]

NARRATIVE: CASE EVENT DATE: 20170817
